FAERS Safety Report 14392193 (Version 2)
Quarter: 2018Q1

REPORT INFORMATION
  Report Type: Spontaneous
  Country: US (occurrence: US)
  Receive Date: 20180116
  Receipt Date: 20180302
  Transmission Date: 20180509
  Serious: Yes (Other)
  Sender: FDA-Public Use
  Company Number: US-PFIZER INC-2018018281

PATIENT
  Age: 56 Year
  Sex: Male

DRUGS (15)
  1. GABAPENTIN. [Suspect]
     Active Substance: GABAPENTIN
     Indication: HEADACHE
     Dosage: 600 MG, 2X/DAY
     Route: 048
     Dates: start: 201711, end: 201712
  2. CARVEDILOL. [Concomitant]
     Active Substance: CARVEDILOL
     Indication: HYPERTENSION
     Dosage: 25 MG, 2X/DAY (25MG TABLET ONCE IN THE MORNING AND ONCE IN THE EVENING)
     Route: 048
     Dates: start: 2009
  3. LORZONE [Concomitant]
     Active Substance: CHLORZOXAZONE
     Indication: RESTLESSNESS
  4. GABAPENTIN. [Suspect]
     Active Substance: GABAPENTIN
     Indication: NEURALGIA
     Dosage: 900 MG, DAILY (DAILY 300 MG (3))
     Route: 048
     Dates: start: 2016, end: 2016
  5. IRBESARTAN. [Concomitant]
     Active Substance: IRBESARTAN
     Indication: BLOOD PRESSURE ABNORMAL
     Dosage: 300 MG, 1X/DAY
     Route: 048
     Dates: start: 2012
  6. ASPIRIN /00002701/ [Concomitant]
     Active Substance: ASPIRIN
     Indication: ANTICOAGULANT THERAPY
     Dosage: 81 MG, 2X/DAY (81MG TABLET ONE IN THE MORNING AND ONE IN THE EVENING BY MOUTH)
     Route: 048
     Dates: start: 2016
  7. CELECOXIB. [Concomitant]
     Active Substance: CELECOXIB
     Indication: ARTHROPATHY
     Dosage: 200 MG, 1X/DAY
     Route: 048
     Dates: start: 2015
  8. LORZONE [Concomitant]
     Active Substance: CHLORZOXAZONE
     Indication: MUSCLE DISORDER
     Dosage: 750 MG, (750MG TABLET BY MOUTH THREE TIMES A DAY AS NEEDED)
     Route: 048
     Dates: start: 2016
  9. CELEBREX [Concomitant]
     Active Substance: CELECOXIB
     Dosage: UNK
  10. DILTIAZEM HCL [Concomitant]
     Active Substance: DILTIAZEM HYDROCHLORIDE
     Indication: HYPERTENSION
     Dosage: 240 MG, 1X/DAY
     Dates: start: 2012
  11. SOTALOL HYDROCHLORIDE. [Concomitant]
     Active Substance: SOTALOL HYDROCHLORIDE
     Indication: HYPERTENSION
     Dosage: 120 MG, 2X/DAY (120MG CAPSULE BY MOUTH ONE IN THE MORNING AND ONE IN THE EVENING)
     Route: 048
     Dates: start: 2017
  12. TRAMADOL. [Concomitant]
     Active Substance: TRAMADOL
     Indication: PAIN
     Dosage: 50 MG, AS NEEDED
     Dates: start: 2015
  13. TRIAMTERENE. [Concomitant]
     Active Substance: TRIAMTERENE
     Indication: HYPERTENSION
     Dosage: 25 MG, 2X/DAY (25MG TABLET BY MOUTH ONE IN THE MORNING AND ONE IN THE EVENING)
     Route: 048
     Dates: start: 2012
  14. CELECOXIB. [Concomitant]
     Active Substance: CELECOXIB
     Indication: ARTHRITIS
  15. OXYCODONE [Concomitant]
     Active Substance: OXYCODONE
     Indication: PAIN
     Dosage: 325 MG, AS NEEDED
     Route: 048
     Dates: start: 2017

REACTIONS (6)
  - Constipation [Not Recovered/Not Resolved]
  - Micturition disorder [Recovered/Resolved]
  - Product use in unapproved indication [Unknown]
  - Rectal haemorrhage [Not Recovered/Not Resolved]
  - Rectal haemorrhage [Recovered/Resolved]
  - Abdominal discomfort [Unknown]

NARRATIVE: CASE EVENT DATE: 2016
